FAERS Safety Report 9522378 (Version 1)
Quarter: 2013Q3

REPORT INFORMATION
  Report Type: Spontaneous
  Country: US (occurrence: US)
  Receive Date: 20130913
  Receipt Date: 20130913
  Transmission Date: 20140515
  Serious: Yes (Life-Threatening, Hospitalization, Other)
  Sender: FDA-Public Use
  Company Number: US-B.I. PHARMACEUTICALS,INC./RIDGEFIELD-2013-BI-28323GD

PATIENT
  Age: 87 Year
  Sex: Male

DRUGS (5)
  1. PRADAXA [Suspect]
     Indication: THROMBOSIS PROPHYLAXIS
     Dosage: 300 MG
     Route: 048
  2. PRADAXA [Suspect]
     Indication: ATRIAL FIBRILLATION
  3. VERAPAMIL [Suspect]
     Dosage: 240 MG
  4. METOPROLOL [Suspect]
     Dosage: 100 MG
  5. FUROSEMIDE [Suspect]
     Dosage: 60 MG

REACTIONS (17)
  - Renal failure acute [Recovered/Resolved]
  - Acute hepatic failure [Unknown]
  - Septic shock [Recovered/Resolved]
  - Pneumonia [Recovered/Resolved]
  - Hypoxia [Recovered/Resolved]
  - Unresponsive to stimuli [Recovered/Resolved]
  - Pulse absent [Recovered/Resolved]
  - Bradycardia [Recovered/Resolved]
  - Arrhythmia [Unknown]
  - Coagulopathy [Recovered/Resolved]
  - Hyperkalaemia [Unknown]
  - Vomiting [Unknown]
  - Fall [Unknown]
  - Overdose [Unknown]
  - Asthenia [Unknown]
  - Hypophagia [Unknown]
  - Cough [Unknown]
